FAERS Safety Report 18723921 (Version 2)
Quarter: 2021Q1

REPORT INFORMATION
  Report Type: Spontaneous
  Country: US (occurrence: US)
  Receive Date: 20210111
  Receipt Date: 20210119
  Transmission Date: 20210419
  Serious: Yes (Other)
  Sender: FDA-Public Use
  Company Number: US-BAYER-2021-016191

PATIENT

DRUGS (1)
  1. CIPRO [Suspect]
     Active Substance: CIPROFLOXACIN HYDROCHLORIDE
     Indication: SINUSITIS
     Dosage: UNK

REACTIONS (26)
  - Discomfort [Not Recovered/Not Resolved]
  - Asthenia [None]
  - Weight increased [None]
  - Inflammation [Not Recovered/Not Resolved]
  - Feeling abnormal [Not Recovered/Not Resolved]
  - Skin discomfort [Not Recovered/Not Resolved]
  - Muscle fatigue [None]
  - Feeling abnormal [None]
  - Fatigue [None]
  - Palpitations [Not Recovered/Not Resolved]
  - Depressed mood [None]
  - Gastrointestinal disorder [None]
  - Glucose tolerance impaired [None]
  - Suicidal ideation [None]
  - Paraesthesia [None]
  - Musculoskeletal pain [None]
  - Amnesia [None]
  - Collagen disorder [None]
  - Nightmare [None]
  - Depression [None]
  - Depersonalisation/derealisation disorder [None]
  - Anxiety [None]
  - Aphasia [None]
  - Headache [Not Recovered/Not Resolved]
  - Fatigue [Not Recovered/Not Resolved]
  - Tendon disorder [None]
